FAERS Safety Report 22309257 (Version 1)
Quarter: 2023Q2

REPORT INFORMATION
  Report Type: Spontaneous
  Country: FR (occurrence: FR)
  Receive Date: 20230511
  Receipt Date: 20230511
  Transmission Date: 20230721
  Serious: Yes (Other)
  Sender: FDA-Public Use
  Company Number: None

PATIENT
  Age: 78 Year
  Sex: Female

DRUGS (3)
  1. ATRACURIUM BESYLATE [Suspect]
     Active Substance: ATRACURIUM BESYLATE
     Dosage: 0.01 MG/L
     Route: 023
     Dates: start: 20221012
  2. MIVACURIUM [Suspect]
     Active Substance: MIVACURIUM
     Dosage: 0.002 MG/L
     Route: 023
     Dates: start: 20221012
  3. CISATRACURIUM [Suspect]
     Active Substance: CISATRACURIUM
     Dosage: 0.02 MG/L
     Route: 023
     Dates: start: 20221012

REACTIONS (1)
  - Skin test positive [Recovered/Resolved]

NARRATIVE: CASE EVENT DATE: 20221012
